FAERS Safety Report 19391063 (Version 2)
Quarter: 2021Q3

REPORT INFORMATION
  Report Type: Report from Study
  Country: US (occurrence: US)
  Receive Date: 20210609
  Receipt Date: 20210702
  Transmission Date: 20211014
  Serious: No
  Sender: FDA-Public Use
  Company Number: US-ACADIA PHARMACEUTICALS INC.-ACA-2021-PIM-001818

PATIENT
  Age: 78 Year
  Sex: Male
  Weight: 75 kg

DRUGS (14)
  1. SIMVASTATIN. [Concomitant]
     Active Substance: SIMVASTATIN
     Dosage: QD
  2. MELATONIN [Concomitant]
     Active Substance: MELATONIN
     Dosage: 6 MILLIGRAM, QD
  3. NUPLAZID [Suspect]
     Active Substance: PIMAVANSERIN TARTRATE
     Indication: HALLUCINATION
  4. VITAMIN B12 [VITAMIN B12 NOS] [Concomitant]
     Active Substance: CYANOCOBALAMIN
     Dosage: QD
  5. NUPLAZID [Suspect]
     Active Substance: PIMAVANSERIN TARTRATE
     Indication: PARKINSON^S DISEASE
     Dosage: 34 MILLIGRAM, QD
     Route: 065
     Dates: start: 20210513, end: 202105
  6. LISINOPRIL. [Concomitant]
     Active Substance: LISINOPRIL
     Dosage: QD
  7. LEXAPRO [Concomitant]
     Active Substance: ESCITALOPRAM OXALATE
     Dosage: QD
  8. CARBIDOPA. [Concomitant]
     Active Substance: CARBIDOPA
     Dosage: 4 TIMES A DAY
  9. VITAMINS NOS [Concomitant]
     Active Substance: VITAMINS
  10. ASA [Concomitant]
     Active Substance: ASPIRIN
     Dosage: QD
  11. AZILECT [Concomitant]
     Active Substance: RASAGILINE MESYLATE
     Dosage: QD
  12. ROPINIROLE. [Concomitant]
     Active Substance: ROPINIROLE
  13. VITEYES [Concomitant]
     Dosage: BID
  14. KRILL OIL [Concomitant]
     Active Substance: DIETARY SUPPLEMENT\KRILL OIL
     Dosage: QD

REACTIONS (6)
  - Rapid eye movement sleep behaviour disorder [Unknown]
  - Screaming [Unknown]
  - Somnolence [Not Recovered/Not Resolved]
  - Confusional state [Unknown]
  - Delusion [Not Recovered/Not Resolved]
  - Abnormal dreams [Not Recovered/Not Resolved]

NARRATIVE: CASE EVENT DATE: 202105
